FAERS Safety Report 7415171-2 (Version None)
Quarter: 2011Q2

REPORT INFORMATION
  Report Type: 
  Country: None (occurrence: None)
  Receive Date: 20110414
  Receipt Date: 20110404
  Transmission Date: 20111010
  Serious: Yes (Hospitalization, Other)
  Sender: FDA-Public Use
  Company Number: PHHY2010NL50230

PATIENT
  Sex: Male

DRUGS (14)
  1. ZOMETA [Suspect]
     Dosage: 4 MG/5 ML
     Route: 042
     Dates: start: 20100409
  2. ZOMETA [Suspect]
     Dosage: 4 MG/5 ML
     Dates: start: 20100922
  3. ZOMETA [Suspect]
     Dosage: 4 MG/5 ML
     Dates: start: 20100701
  4. ZOMETA [Suspect]
     Dosage: 4 MG/5 ML
     Dates: start: 20100729
  5. BICALUTAMIDE [Concomitant]
     Dosage: UNK
  6. PERINDOPRIL ERBUMINE [Concomitant]
     Dosage: 4 MG
  7. ZOMETA [Suspect]
     Dosage: 4 MG/5 ML
     Dates: start: 20100506
  8. ZOMETA [Suspect]
     Dosage: 4 MG/5 ML
     Dates: start: 20100825
  9. DIAZEPAM [Concomitant]
  10. METOPROLOL TARTRATE [Concomitant]
     Dosage: UNK
  11. LYRICA [Concomitant]
     Dosage: UNK
  12. PERINDOPRIL ERBUMINE [Concomitant]
     Dosage: 2 MG
  13. ZOMETA [Suspect]
     Dosage: 4 MG/5 ML
     Dates: start: 20100603
  14. ZOMETA [Suspect]
     Dosage: 4 MG/5 ML
     Route: 042
     Dates: start: 20101021

REACTIONS (9)
  - ARTHRALGIA [None]
  - OEDEMA PERIPHERAL [None]
  - METASTASIS [None]
  - HAEMOGLOBIN DECREASED [None]
  - FATIGUE [None]
  - GAIT DISTURBANCE [None]
  - BACK PAIN [None]
  - CONSTIPATION [None]
  - DIZZINESS [None]
